FAERS Safety Report 13479617 (Version 1)
Quarter: 2017Q2

REPORT INFORMATION
  Report Type: Spontaneous
  Country: US (occurrence: US)
  Receive Date: 20170425
  Receipt Date: 20170425
  Transmission Date: 20170830
  Serious: No
  Sender: FDA-Public Use
  Company Number: US-BAYER-2017-078339

PATIENT
  Age: 10 Year
  Sex: Male

DRUGS (1)
  1. CLARITIN [Suspect]
     Active Substance: LORATADINE
     Indication: ALLERGY PROPHYLAXIS
     Dosage: UNK
     Route: 065

REACTIONS (1)
  - Off label use [Unknown]
